FAERS Safety Report 8481554-5 (Version None)
Quarter: 2012Q3

REPORT INFORMATION
  Report Type: 
  Country: None (occurrence: None)
  Receive Date: 20120702
  Receipt Date: 20120622
  Transmission Date: 20120928
  Serious: Yes (Hospitalization)
  Sender: FDA-Public Use
  Company Number: US-CELGENEUS-163-21880-12031212

PATIENT
  Sex: Male
  Weight: 82.6 kg

DRUGS (2)
  1. REVLIMID [Suspect]
     Indication: MULTIPLE MYELOMA
     Dosage: 10 MILLIGRAM
     Route: 048
     Dates: start: 20070412
  2. EXJADE [Concomitant]
     Dosage: 500 MILLIGRAM
     Route: 048
     Dates: start: 20070317

REACTIONS (2)
  - DIARRHOEA [None]
  - METASTASES TO BONE [None]
